FAERS Safety Report 12501728 (Version 2)
Quarter: 2016Q3

REPORT INFORMATION
  Report Type: Spontaneous
  Country: GB (occurrence: GB)
  Receive Date: 20160627
  Receipt Date: 20160818
  Transmission Date: 20161109
  Serious: Yes (Other)
  Sender: FDA-Public Use
  Company Number: GB-BAYER-2015-431259

PATIENT
  Age: 51 Year
  Sex: Female

DRUGS (1)
  1. BETAFERON [Suspect]
     Active Substance: INTERFERON BETA-1B
     Indication: MULTIPLE SCLEROSIS
     Dosage: 250 ?G, QOD
     Route: 058
     Dates: start: 20140723

REACTIONS (5)
  - Ligament rupture [None]
  - Fall [None]
  - Tonsillitis [None]
  - Fatigue [None]
  - Drug dose omission [None]

NARRATIVE: CASE EVENT DATE: 201606
